FAERS Safety Report 17104578 (Version 1)
Quarter: 2019Q4

REPORT INFORMATION
  Report Type: Spontaneous
  Country: US (occurrence: US)
  Receive Date: 20191107
  Receipt Date: 20191107
  Transmission Date: 20200122
  Serious: Yes (Hospitalization)
  Sender: FDA-Public Use
  Company Number: None

PATIENT
  Age: 64 Year
  Sex: Female

DRUGS (7)
  1. MULTIVITAMIN [Concomitant]
     Active Substance: VITAMINS
  2. BIOTIN HP [Concomitant]
  3. LYRICA [Concomitant]
     Active Substance: PREGABALIN
  4. BUPROPION. [Concomitant]
     Active Substance: BUPROPION
  5. GLATIRAMER 40MG/ML [Suspect]
     Active Substance: GLATIRAMER
     Indication: MULTIPLE SCLEROSIS
     Route: 058
     Dates: start: 20180502
  6. OMEGA-3FISH OIL [Concomitant]
  7. IBUPROFEN. [Concomitant]
     Active Substance: IBUPROFEN

REACTIONS (3)
  - Constipation [None]
  - Unevaluable event [None]
  - Dyspepsia [None]

NARRATIVE: CASE EVENT DATE: 20191106
